FAERS Safety Report 7288589 (Version 2)
Quarter: 2015Q2

REPORT INFORMATION
  Report Type: Spontaneous
  Country: DE (occurrence: DE)
  Receive Date: 20100222
  Receipt Date: 20150417
  Transmission Date: 20150821
  Serious: Yes (Death, Life-Threatening)
  Sender: FDA-Public Use
  Company Number: DE-ROCHE-652457

PATIENT
  Age: 42 Year
  Sex: Male
  Weight: 100 kg

DRUGS (3)
  1. AVASTIN [Suspect]
     Active Substance: BEVACIZUMAB
     Indication: COLON CANCER
     Route: 042
     Dates: start: 20090331, end: 20090805
  2. XELODA [Concomitant]
     Active Substance: CAPECITABINE
     Route: 065
  3. XELODA [Concomitant]
     Active Substance: CAPECITABINE
     Dosage: ON DAYS 1 TO 7 AND DAY 14 TO 28 IN SECOND CYCLE
     Route: 065

REACTIONS (3)
  - Peritonitis [Fatal]
  - Intestinal perforation [Fatal]
  - Inflammation [Unknown]

NARRATIVE: CASE EVENT DATE: 20090807
